FAERS Safety Report 8536714 (Version 3)
Quarter: 2014Q2

REPORT INFORMATION
  Report Type: Spontaneous
  Country: US (occurrence: US)
  Receive Date: 20120430
  Receipt Date: 20140502
  Transmission Date: 20141212
  Serious: Yes (Other)
  Sender: FDA-Public Use
  Company Number: US-ASTRAZENECA-2012SE26373

PATIENT
  Age: 79 Year
  Sex: Female
  Weight: 49 kg

DRUGS (6)
  1. SYMBICORT PMDI [Suspect]
     Indication: ASTHMA
     Dosage: 160/4.5 MCG, DAILY
     Route: 055
  2. SYMBICORT PMDI [Suspect]
     Indication: ASTHMA
     Dosage: 160/4.5 MCG, 2 PUFFS BID
     Route: 055
     Dates: start: 2011
  3. UNSPECIFIED MEDICATION [Concomitant]
     Indication: BLOOD PRESSURE ABNORMAL
  4. UNSPECIFIED MEDICATION 1 [Concomitant]
     Indication: CARDIAC DISORDER
  5. GABAPENTIN [Concomitant]
     Indication: PAIN
  6. TYLENOL [Concomitant]
     Indication: PAIN

REACTIONS (10)
  - Fall [Unknown]
  - Rib fracture [Unknown]
  - Wrist fracture [Unknown]
  - Cataract [Unknown]
  - Rheumatoid arthritis [Unknown]
  - Device lead damage [Unknown]
  - Body height decreased [Unknown]
  - Weight decreased [Unknown]
  - Spinal disorder [Unknown]
  - Seasonal allergy [Unknown]
